FAERS Safety Report 6426284-6 (Version None)
Quarter: 2009Q4

REPORT INFORMATION
  Report Type: 
  Country: None (occurrence: None)
  Receive Date: 20091104
  Receipt Date: 20091022
  Transmission Date: 20100525
  Serious: Yes (Other)
  Sender: FDA-Public Use
  Company Number: US-ROCHE-664363

PATIENT
  Sex: Female

DRUGS (2)
  1. PEGASYS [Suspect]
     Indication: HEPATITIS C
     Dosage: FORM: PRE-FILLED SYRINGE
     Route: 058
     Dates: start: 20090805
  2. RIBAVIRIN (NON-ROCHE) [Suspect]
     Indication: HEPATITIS C
     Route: 048
     Dates: start: 20090805

REACTIONS (6)
  - BACK PAIN [None]
  - DEPRESSION [None]
  - IMMOBILE [None]
  - LETHARGY [None]
  - MALAISE [None]
  - NAUSEA [None]
